FAERS Safety Report 25483035 (Version 2)
Quarter: 2025Q3

REPORT INFORMATION
  Report Type: Spontaneous
  Country: CO (occurrence: CO)
  Receive Date: 20250626
  Receipt Date: 20250710
  Transmission Date: 20251021
  Serious: Yes (Death, Hospitalization)
  Sender: BAYER HEALTHCARE PHARMACEUTICALS INC.
  Company Number: CO-BAYER-2025A084865

PATIENT
  Age: 23 Year
  Sex: Male

DRUGS (1)
  1. ADEMPAS [Suspect]
     Active Substance: RIOCIGUAT
     Indication: Pulmonary arterial hypertension
     Dosage: 0.5 MG, Q8HR
     Route: 048
     Dates: start: 20250424

REACTIONS (6)
  - Cardio-respiratory arrest [Fatal]
  - Cardiac operation [Not Recovered/Not Resolved]
  - Lung operation [Not Recovered/Not Resolved]
  - Hypertension [None]
  - Pulmonary thrombosis [None]
  - Antiphospholipid syndrome [None]

NARRATIVE: CASE EVENT DATE: 20250424
